FAERS Safety Report 7269563-5 (Version None)
Quarter: 2011Q1

REPORT INFORMATION
  Report Type: 
  Country: None (occurrence: None)
  Receive Date: 20110124
  Receipt Date: 20101231
  Transmission Date: 20110831
  Serious: Yes (Death)
  Sender: FDA-Public Use
  Company Number: AUR-APL-2011-00091

PATIENT
  Age: 25 Year
  Sex: Female

DRUGS (2)
  1. ALCOHOL [Suspect]
     Dosage: -ORAL
     Route: 048
  2. METFORMIN HCL [Suspect]
     Dosage: -ORAL
     Route: 048

REACTIONS (2)
  - ALCOHOL POISONING [None]
  - TOXICITY TO VARIOUS AGENTS [None]
